FAERS Safety Report 13938181 (Version 2)
Quarter: 2017Q3

REPORT INFORMATION
  Report Type: Spontaneous
  Country: PL (occurrence: PL)
  Receive Date: 20170905
  Receipt Date: 20170920
  Transmission Date: 20171127
  Serious: Yes (Hospitalization, Other)
  Sender: FDA-Public Use
  Company Number: PL-GILEAD-2017-0291476

PATIENT
  Age: 43 Year
  Sex: Male

DRUGS (6)
  1. ABELCET [Concomitant]
     Active Substance: AMPHOTERICIN B\DIMYRISTOYLPHOSPHATIDYLCHOLINE, DL-\DIMYRISTOYLPHOSPHATIDYLGLYCEROL, DL-
     Indication: CRYPTOCOCCOSIS
     Dosage: UNK UNKNOWN, UNK
     Route: 065
  2. ANCOTIL [Concomitant]
     Active Substance: FLUCYTOSINE
     Indication: CRYPTOCOCCOSIS
     Dosage: UNK UNKNOWN, UNK
     Route: 065
  3. HEPAMERZ                           /01390201/ [Concomitant]
     Indication: HEPATIC ENCEPHALOPATHY
     Dosage: UNK UNKNOWN, UNK
     Route: 065
  4. DOLUTEGRAVIR [Suspect]
     Active Substance: DOLUTEGRAVIR
     Indication: ANTIRETROVIRAL THERAPY
     Dosage: UNK UNKNOWN, UNK
     Route: 065
  5. DESCOVY [Suspect]
     Active Substance: EMTRICITABINE\TENOFOVIR ALAFENAMIDE FUMARATE
     Indication: ANTIRETROVIRAL THERAPY
     Dosage: UNK UNKNOWN, UNK
     Route: 065
  6. FLUCONAZOLE. [Concomitant]
     Active Substance: FLUCONAZOLE
     Indication: CRYPTOCOCCOSIS
     Dosage: UNK UNKNOWN, UNK
     Route: 065

REACTIONS (4)
  - Altered state of consciousness [Recovering/Resolving]
  - Headache [Recovering/Resolving]
  - Seizure [Recovering/Resolving]
  - Immune reconstitution inflammatory syndrome [Recovering/Resolving]
